FAERS Safety Report 24294150 (Version 1)
Quarter: 2024Q3

REPORT INFORMATION
  Report Type: Spontaneous
  Country: US (occurrence: None)
  Receive Date: 20240906
  Receipt Date: 20240906
  Transmission Date: 20241017
  Serious: No
  Sender: DOMPE FARMACEUTICI
  Company Number: US-FARMAPROD-202405-1804

PATIENT
  Sex: Male

DRUGS (15)
  1. OXERVATE [Suspect]
     Active Substance: CENEGERMIN-BKBJ
     Indication: Neurotrophic keratopathy
     Route: 047
     Dates: start: 20240503
  2. OXERVATE [Suspect]
     Active Substance: CENEGERMIN-BKBJ
  3. EYEWASH [Concomitant]
     Active Substance: WATER
     Dosage: IRRIGATION SOLUTION
  4. IBUPROFEN [Concomitant]
     Active Substance: IBUPROFEN
  5. BENADRYL ALLERGY [Concomitant]
     Active Substance: DIPHENHYDRAMINE HYDROCHLORIDE
  6. FLUTICASONE PROPIONATE [Concomitant]
     Active Substance: FLUTICASONE PROPIONATE
     Dosage: HYDROFLUOROALKANE
  7. GLYCERIN [Concomitant]
     Active Substance: GLYCERIN
     Dosage: ADULT
  8. ALBUTEROL SULFATE [Concomitant]
     Active Substance: ALBUTEROL SULFATE
     Dosage: HYDROFLUOROALKANE
  9. PATADAY [Concomitant]
     Active Substance: OLOPATADINE HYDROCHLORIDE
     Dosage: ONCE DAILY RELIEF
  10. ENEMA (SODIUM PHOSPHATE, DIBASIC\SODIUM PHOSPHATE, MONOBASIC) [Concomitant]
     Active Substance: SODIUM PHOSPHATE, DIBASIC\SODIUM PHOSPHATE, MONOBASIC
     Dosage: 19G-7G/118
  11. ERYTHROMYCIN [Concomitant]
     Active Substance: ERYTHROMYCIN
     Dosage: 5 MG/GRAM
  12. CETIRIZINE HYDROCHLORIDE [Concomitant]
     Active Substance: CETIRIZINE HYDROCHLORIDE
  13. VALACYCLOVIR [Concomitant]
     Active Substance: VALACYCLOVIR HYDROCHLORIDE
  14. LEVETIRACETAM [Concomitant]
     Active Substance: LEVETIRACETAM
  15. ESOMEPRAZOLE MAGNESIUM [Concomitant]
     Active Substance: ESOMEPRAZOLE MAGNESIUM

REACTIONS (4)
  - Vision blurred [Unknown]
  - Eye discharge [Recovered/Resolved]
  - Ocular hyperaemia [Unknown]
  - Eye infection [Recovered/Resolved]
